FAERS Safety Report 8829588 (Version 1)
Quarter: 2012Q4

REPORT INFORMATION
  Report Type: 
  Country: US (occurrence: US)
  Receive Date: 20121008
  Receipt Date: 20121008
  Transmission Date: 20130627
  Serious: No
  Sender: FDA-Public Use
  Company Number: US-BAYER-2012-103551

PATIENT
  Age: 80 Year
  Sex: Female

DRUGS (2)
  1. AVELOX [Suspect]
     Dosage: 400 mg, QD
     Route: 048
     Dates: start: 20121001, end: 20121001
  2. AVAPRO [Concomitant]

REACTIONS (4)
  - Dizziness [Recovering/Resolving]
  - Feeling hot [Recovering/Resolving]
  - Hyperhidrosis [Recovering/Resolving]
  - Vomiting [Recovering/Resolving]
